FAERS Safety Report 4823530-7 (Version None)
Quarter: 2005Q4

REPORT INFORMATION
  Report Type: 
  Country: None (occurrence: None)
  Receive Date: 20051107
  Receipt Date: 20051026
  Transmission Date: 20060501
  Serious: Yes (Life-Threatening, Hospitalization)
  Sender: FDA-Public Use
  Company Number: 218609

PATIENT
  Age: 53 Year
  Sex: Female
  Weight: 97.5 kg

DRUGS (1)
  1. AVASTIN [Suspect]
     Indication: COLORECTAL CANCER METASTATIC
     Dosage: 5 MG/KG, Q2W, INTRAVENOUS
     Route: 042
     Dates: start: 20040630, end: 20041206

REACTIONS (3)
  - GASTROINTESTINAL ANASTOMOTIC LEAK [None]
  - GASTROINTESTINAL OBSTRUCTION [None]
  - PROCEDURAL COMPLICATION [None]
